FAERS Safety Report 12047034 (Version 1)
Quarter: 2016Q1

REPORT INFORMATION
  Report Type: Spontaneous
  Country: US (occurrence: US)
  Receive Date: 20160208
  Receipt Date: 20160208
  Transmission Date: 20160526
  Serious: Yes (Hospitalization, Other)
  Sender: FDA-Public Use
  Company Number: US-GLAXOSMITHKLINE-US2016GSK016337

PATIENT
  Sex: Male
  Weight: 72.56 kg

DRUGS (8)
  1. LAMICTAL [Suspect]
     Active Substance: LAMOTRIGINE
     Indication: EPILEPSY
     Dosage: 150 MG, BID
  2. KLONOPIN [Concomitant]
     Active Substance: CLONAZEPAM
  3. RESTORIL [Concomitant]
     Active Substance: TEMAZEPAM
  4. OMEPRAZOLE. [Concomitant]
     Active Substance: OMEPRAZOLE
  5. PREDNISONE. [Suspect]
     Active Substance: PREDNISONE
     Indication: BACK DISORDER
  6. LAMOTRIGINE. [Suspect]
     Active Substance: LAMOTRIGINE
     Indication: EPILEPSY
  7. LAMICTAL [Suspect]
     Active Substance: LAMOTRIGINE
     Indication: SEIZURE
  8. VIMPAT [Suspect]
     Active Substance: LACOSAMIDE
     Indication: SEIZURE
     Dosage: 150 MG, BID

REACTIONS (13)
  - Hypoaesthesia [Unknown]
  - Stress [Unknown]
  - Seizure [Unknown]
  - Drug interaction [Unknown]
  - Drug ineffective [Unknown]
  - Back disorder [Recovering/Resolving]
  - Impaired driving ability [Unknown]
  - Confusional state [Unknown]
  - Abnormal behaviour [Unknown]
  - Alcohol interaction [Unknown]
  - Disorientation [Unknown]
  - Amnesia [Unknown]
  - Product substitution issue [Unknown]
